FAERS Safety Report 5478366-3 (Version None)
Quarter: 2007Q4

REPORT INFORMATION
  Report Type: 
  Country: None (occurrence: None)
  Receive Date: 20071005
  Receipt Date: 20071003
  Transmission Date: 20080405
  Serious: Yes (Hospitalization)
  Sender: FDA-Public Use
  Company Number: B0482389A

PATIENT
  Age: 61 Year
  Sex: Male
  Weight: 80 kg

DRUGS (1)
  1. ARIXTRA [Suspect]
     Indication: DEEP VEIN THROMBOSIS
     Dosage: 7.5MG PER DAY
     Route: 058
     Dates: end: 20070317

REACTIONS (5)
  - ANAEMIA [None]
  - HAEMATEMESIS [None]
  - HYPERHIDROSIS [None]
  - OESOPHAGEAL ULCER [None]
  - PALLOR [None]
